FAERS Safety Report 12059854 (Version 2)
Quarter: 2016Q2

REPORT INFORMATION
  Report Type: Report from Study
  Country: JP (occurrence: JP)
  Receive Date: 20160210
  Receipt Date: 20160418
  Transmission Date: 20160815
  Serious: Yes (Death, Hospitalization)
  Sender: FDA-Public Use
  Company Number: JP-009507513-1602JPN004806

PATIENT
  Age: 44 Year
  Sex: Female
  Weight: 63.5 kg

DRUGS (15)
  1. AVASTIN [Suspect]
     Active Substance: BEVACIZUMAB
     Dosage: DAILY DOSAGE UNKNOWN, EVERY TWO WEEKS
     Route: 051
     Dates: start: 20130621
  2. AVASTIN [Suspect]
     Active Substance: BEVACIZUMAB
     Dosage: DAILY DOSAGE UNKNOWN
     Route: 051
     Dates: start: 20130719
  3. MAGNESIUM OXIDE. [Concomitant]
     Active Substance: MAGNESIUM OXIDE
     Indication: PROPHYLAXIS
     Dosage: DAILY DOSAGE UNKNOWN. FORMULATION: POR
     Route: 048
  4. GLIADEL [Concomitant]
     Active Substance: CARMUSTINE
     Indication: GLIOBLASTOMA MULTIFORME
     Dosage: DAILY DOSAGE UNKNOWN. FORMULATION: EXT
     Route: 051
     Dates: start: 20130213
  5. E KEPPRA [Concomitant]
     Active Substance: LEVETIRACETAM
     Indication: PROPHYLAXIS
     Dosage: DAILY DOSAGE UNKNOWN. FORMULATION: POR
     Route: 048
  6. TEMOZOLOMIDE. [Suspect]
     Active Substance: TEMOZOLOMIDE
     Indication: GLIOBLASTOMA MULTIFORME
     Dosage: 150 MG/M2, QD (4TH CYCLE)
     Route: 041
     Dates: start: 20130827, end: 20130831
  7. TEMODAL [Suspect]
     Active Substance: TEMOZOLOMIDE
     Dosage: DAILY DOSE UNKNOWN (5TH CYCLE)
     Route: 048
     Dates: start: 20130924
  8. SAMTIREL [Concomitant]
     Active Substance: ATOVAQUONE
     Indication: PROPHYLAXIS
     Dosage: DAILY DOSAGE UNKNOWN. FORMULATION: POR
     Route: 048
  9. TEMODAL [Suspect]
     Active Substance: TEMOZOLOMIDE
     Dosage: 150 MG/M2, QD. DIVIDED DOSE FREQUENCY UNKNOWN (3RD CYCLE)
     Route: 048
     Dates: start: 20130719
  10. TEMODAL [Suspect]
     Active Substance: TEMOZOLOMIDE
     Dosage: DAILY DOSE UNKNOWN (2ND CYCLE)
     Route: 048
     Dates: start: 20130607
  11. WARFARIN POTASSIUM [Concomitant]
     Active Substance: WARFARIN POTASSIUM
     Indication: PROPHYLAXIS
     Dosage: DAILY DOSAGE UNKNOWN
     Route: 048
  12. EXCEGRAN [Concomitant]
     Active Substance: ZONISAMIDE
     Indication: PROPHYLAXIS
     Dosage: DAILY DOSAGE UNKNOWN. FORMULATION: POR
     Route: 048
  13. TEMODAL [Suspect]
     Active Substance: TEMOZOLOMIDE
     Indication: GLIOBLASTOMA MULTIFORME
     Dosage: DAILY DOSE UNKNOWN
     Route: 048
     Dates: start: 20130219, end: 20130405
  14. RINDERON V [Concomitant]
     Active Substance: BETAMETHASONE VALERATE
     Indication: PROPHYLAXIS
     Dosage: DAILY DOSAGE UNKNOWN. FORMULATION: POR
     Route: 048
  15. TEMODAL [Suspect]
     Active Substance: TEMOZOLOMIDE
     Dosage: DAILY DOSE UNKNOWN (1ST CYCLE)
     Route: 048
     Dates: start: 20130507

REACTIONS (6)
  - Activities of daily living impaired [Unknown]
  - Seizure [Recovered/Resolved]
  - Rash [Recovering/Resolving]
  - Dysphagia [Unknown]
  - Death [Fatal]
  - Rash [Unknown]

NARRATIVE: CASE EVENT DATE: 20130610
